FAERS Safety Report 21010593 (Version 1)
Quarter: 2022Q2

REPORT INFORMATION
  Report Type: Spontaneous
  Country: US (occurrence: US)
  Receive Date: 20220627
  Receipt Date: 20220627
  Transmission Date: 20220721
  Serious: No
  Sender: FDA-Public Use
  Company Number: US-AMGEN-USASP2022107268

PATIENT
  Age: 70 Year
  Sex: Female

DRUGS (11)
  1. REPATHA [Suspect]
     Active Substance: EVOLOCUMAB
     Indication: Product used for unknown indication
     Dosage: 140 MILLIGRAM, Q2WK
     Route: 058
  2. CLOPIDOGREL [Concomitant]
     Active Substance: CLOPIDOGREL BISULFATE
     Dosage: UNK
  3. AMLODIPINE [Concomitant]
     Active Substance: AMLODIPINE BESYLATE
     Dosage: UNK
  4. LOSARTAN [Concomitant]
     Active Substance: LOSARTAN
  5. MAGNESIUM [Concomitant]
     Active Substance: MAGNESIUM
  6. ASPIRIN [Concomitant]
     Active Substance: ASPIRIN
     Dosage: UNK UNK, QD
  7. VITAMIN D NOS [Concomitant]
     Active Substance: VITAMIN D NOS
     Dosage: 400 UNK
  8. VITAMIN B [Concomitant]
     Active Substance: VITAMIN B
     Dosage: 400 MILLIGRAM, QWK
  9. ZYRTEC [Concomitant]
     Active Substance: CETIRIZINE HYDROCHLORIDE
  10. RIZATRIPTAN [Concomitant]
     Active Substance: RIZATRIPTAN
     Indication: Migraine
  11. TOPIRAMATE [Concomitant]
     Active Substance: TOPIRAMATE
     Indication: Headache
     Dosage: UNK, QD

REACTIONS (3)
  - Injury associated with device [Unknown]
  - Accidental exposure to product [Unknown]
  - Wrong technique in product usage process [Unknown]

NARRATIVE: CASE EVENT DATE: 20220620
